FAERS Safety Report 8010868-8 (Version None)
Quarter: 2011Q4

REPORT INFORMATION
  Report Type: 
  Country: None (occurrence: None)
  Receive Date: 20111228
  Receipt Date: 20111215
  Transmission Date: 20120403
  Serious: Yes (Hospitalization)
  Sender: FDA-Public Use
  Company Number: US-ELI_LILLY_AND_COMPANY-US201101007401

PATIENT
  Sex: Female

DRUGS (20)
  1. FORTEO [Suspect]
     Dosage: 20 UG, DAILY (1/D)
     Route: 065
  2. IBUPROFEN [Concomitant]
  3. HYDROCODONE [Concomitant]
     Indication: PAIN
  4. FORTEO [Suspect]
     Indication: OSTEOPOROSIS
     Dosage: 20 UG, DAILY (1/D)
     Route: 065
  5. FUROSEMIDE [Concomitant]
  6. LEVATOL [Concomitant]
  7. TRICOR [Concomitant]
  8. FORTEO [Suspect]
     Dosage: 20 UG, QD
  9. GENERLAC [Concomitant]
     Indication: CONSTIPATION
  10. KLOR-CON [Concomitant]
  11. ACTOS [Concomitant]
  12. AMITRIPTYLINE [Concomitant]
  13. CENTRUM SILVER [Concomitant]
  14. FERGON [Concomitant]
  15. MIRALAX [Concomitant]
  16. FORTEO [Suspect]
     Dosage: 20 UG, DAILY (1/D)
     Route: 065
  17. CRESTOR [Concomitant]
  18. XALATAN [Concomitant]
     Indication: EYE DISORDER
  19. FORTEO [Suspect]
     Dosage: 20 UG, QD
  20. LOSARTAN POTASSIUM [Concomitant]

REACTIONS (10)
  - SPINAL FRACTURE [None]
  - ABDOMINAL DISTENSION [None]
  - BACK PAIN [None]
  - MUSCULOSKELETAL CHEST PAIN [None]
  - DECREASED APPETITE [None]
  - ABDOMINAL DISCOMFORT [None]
  - INJECTION SITE HAEMORRHAGE [None]
  - PAIN [None]
  - INFREQUENT BOWEL MOVEMENTS [None]
  - CONSTIPATION [None]
